FAERS Safety Report 15143771 (Version 1)
Quarter: 2018Q3

REPORT INFORMATION
  Report Type: Spontaneous
  Country: US (occurrence: US)
  Receive Date: 20180713
  Receipt Date: 20180713
  Transmission Date: 20181010
  Serious: No
  Sender: FDA-Public Use
  Company Number: US-AMGEN-USASP2010002205

PATIENT
  Age: 78 Year
  Sex: Female

DRUGS (6)
  1. METOPROLOL. [Concomitant]
     Active Substance: METOPROLOL
  2. INSULIN [Concomitant]
     Active Substance: INSULIN NOS
  3. EPOGEN [Suspect]
     Active Substance: ERYTHROPOIETIN
     Indication: CHRONIC KIDNEY DISEASE
     Dosage: 8000 IU, 2 TIMES/WK
     Dates: start: 201008
  4. EPOGEN [Suspect]
     Active Substance: ERYTHROPOIETIN
     Dosage: UNK, 3 TIMES/WK
  5. LOVASTATIN. [Concomitant]
     Active Substance: LOVASTATIN
  6. LEVOTHYROXINE. [Concomitant]
     Active Substance: LEVOTHYROXINE

REACTIONS (1)
  - Injection site pain [Unknown]

NARRATIVE: CASE EVENT DATE: 201008
